FAERS Safety Report 6839092-9 (Version None)
Quarter: 2010Q3

REPORT INFORMATION
  Report Type: 
  Country: None (occurrence: None)
  Receive Date: 20100714
  Receipt Date: 20100630
  Transmission Date: 20110219
  Serious: No
  Sender: FDA-Public Use
  Company Number: US-BIOGENIDEC-2010BI022178

PATIENT
  Age: 46 Year
  Sex: Female

DRUGS (1)
  1. AVONEX [Suspect]
     Indication: MULTIPLE SCLEROSIS
     Route: 030
     Dates: start: 20100415

REACTIONS (5)
  - DEPRESSION [None]
  - DYSPNOEA [None]
  - FATIGUE [None]
  - MEMORY IMPAIRMENT [None]
  - NEURALGIA [None]
